FAERS Safety Report 4525894-0 (Version None)
Quarter: 2004Q4

REPORT INFORMATION
  Report Type: 
  Country: None (occurrence: None)
  Receive Date: 20041124
  Receipt Date: 20040319
  Transmission Date: 20050328
  Serious: Yes (Other)
  Sender: FDA-Public Use
  Company Number: 2004011058

PATIENT
  Age: 70 Year
  Sex: Male
  Weight: 74.8435 kg

DRUGS (3)
  1. TIKOSYN [Suspect]
     Indication: ATRIAL FIBRILLATION
     Dosage: 1000 MG (BID)
     Dates: start: 20031009
  2. WARFARIN SODIUM [Concomitant]
  3. ACETYLSALICYLIC ACID SRT [Concomitant]

REACTIONS (5)
  - ATRIAL FIBRILLATION [None]
  - BREATH ODOUR [None]
  - CARDIOVERSION [None]
  - FATIGUE [None]
  - PAROSMIA [None]
